FAERS Safety Report 9005377 (Version 1)
Quarter: 2013Q1

REPORT INFORMATION
  Report Type: Not Available
  Country: CN (occurrence: CN)
  Receive Date: 20130108
  Receipt Date: 20130108
  Transmission Date: 20140127
  Serious: Yes (Other)
  Sender: FDA-Public Use
  Company Number: CN-NAPPMUNDI-DEU-2012-0010230

PATIENT
  Age: 59 Year
  Sex: Female
  Weight: 55 kg

DRUGS (1)
  1. MS CONTIN TABLETS [Suspect]
     Indication: HERPES ZOSTER INFECTION NEUROLOGICAL
     Dosage: 30 MG, BID
     Route: 048
     Dates: start: 20100814, end: 20100817

REACTIONS (5)
  - Loss of consciousness [Recovering/Resolving]
  - Cyanosis [Recovering/Resolving]
  - Cyanosis [Recovering/Resolving]
  - Dysphoria [Recovering/Resolving]
  - Dyspnoea [Recovering/Resolving]
